FAERS Safety Report 23617249 (Version 1)
Quarter: 2024Q1

REPORT INFORMATION
  Report Type: Spontaneous
  Country: FR (occurrence: None)
  Receive Date: 20240311
  Receipt Date: 20240311
  Transmission Date: 20240410
  Serious: Yes (Death, Other)
  Sender: FDA-Public Use
  Company Number: 2024A058559

PATIENT
  Sex: Male
  Weight: 71 kg

DRUGS (2)
  1. OSIMERTINIB [Suspect]
     Active Substance: OSIMERTINIB
     Route: 048
     Dates: start: 20220125
  2. OSIMERTINIB [Suspect]
     Active Substance: OSIMERTINIB
     Route: 048
     Dates: start: 20220228

REACTIONS (1)
  - Toxicity to various agents [Fatal]
